FAERS Safety Report 9436735 (Version 1)
Quarter: 2013Q3

REPORT INFORMATION
  Report Type: Spontaneous
  Country: US (occurrence: US)
  Receive Date: 20130802
  Receipt Date: 20130802
  Transmission Date: 20140515
  Serious: Yes (Hospitalization)
  Sender: FDA-Public Use
  Company Number: US-BAYER-2013-092185

PATIENT
  Age: 46 Year
  Sex: Female
  Weight: 60.32 kg

DRUGS (2)
  1. YAZ [Suspect]
  2. ADIPEX [Concomitant]

REACTIONS (1)
  - Pulmonary embolism [Recovered/Resolved]
